FAERS Safety Report 8166563-8 (Version None)
Quarter: 2012Q1

REPORT INFORMATION
  Report Type: 
  Country: None (occurrence: None)
  Receive Date: 20120227
  Receipt Date: 20111201
  Transmission Date: 20120608
  Serious: No
  Sender: FDA-Public Use
  Company Number: US-BRISTOL-MYERS SQUIBB COMPANY-16153710

PATIENT
  Age: 53 Year
  Sex: Male

DRUGS (2)
  1. CARBOPLATIN [Suspect]
     Indication: MALIGNANT MELANOMA
     Dosage: 1DF:AUC5 AND REDUCED ON 6SEP10 TO AUC4
     Route: 042
     Dates: start: 20091022, end: 20100930
  2. TAXOL [Suspect]
     Indication: MALIGNANT MELANOMA
     Dosage: DAY 1,8,15 OF EACH 28D CYCLE
     Route: 042
     Dates: start: 20091022, end: 20100930

REACTIONS (3)
  - HYPOMAGNESAEMIA [None]
  - BLOOD POTASSIUM DECREASED [None]
  - NEUROPATHY PERIPHERAL [None]
